FAERS Safety Report 4998332-1 (Version None)
Quarter: 2006Q2

REPORT INFORMATION
  Report Type: 
  Country: None (occurrence: None)
  Receive Date: 20060508
  Receipt Date: 20060424
  Transmission Date: 20061013
  Serious: Yes (Other)
  Sender: FDA-Public Use
  Company Number: 2006055902

PATIENT
  Age: 61 Year
  Sex: Female

DRUGS (2)
  1. XALATAN [Suspect]
     Indication: ANGLE CLOSURE GLAUCOMA
     Dosage: OPHTHALMIC
     Route: 047
     Dates: start: 20030101, end: 20060421
  2. CORTICOSTEROIDS (CORTICOSTEROIDS) [Suspect]
     Indication: MACULAR OEDEMA
     Dates: start: 20051201

REACTIONS (1)
  - MACULAR OEDEMA [None]
